FAERS Safety Report 11026317 (Version 1)
Quarter: 2015Q2

REPORT INFORMATION
  Report Type: Report from Study
  Country: US (occurrence: US)
  Receive Date: 20150414
  Receipt Date: 20150414
  Transmission Date: 20150821
  Serious: Yes (Other)
  Sender: FDA-Public Use
  Company Number: US-BAYER-2015-099424

PATIENT
  Age: 42 Year
  Sex: Female

DRUGS (1)
  1. STIVARGA [Suspect]
     Active Substance: REGORAFENIB
     Indication: COLON CANCER
     Dosage: 160 MG DAILY DOSE, FOR THREE WEEKS ON AND ONE WEEK OFF
     Route: 048
     Dates: start: 20150318

REACTIONS (3)
  - Blister [Not Recovered/Not Resolved]
  - Tongue blistering [None]
  - Diarrhoea [Not Recovered/Not Resolved]

NARRATIVE: CASE EVENT DATE: 20150318
